FAERS Safety Report 16666492 (Version 1)
Quarter: 2019Q3

REPORT INFORMATION
  Report Type: Spontaneous
  Country: US (occurrence: US)
  Receive Date: 20190805
  Receipt Date: 20190805
  Transmission Date: 20191004
  Serious: Yes (Death, Hospitalization)
  Sender: FDA-Public Use
  Company Number: US-AMERIGEN PHARMACEUTICALS, INC-2019AMG000031

PATIENT

DRUGS (3)
  1. TEMOZOLOMIDE UNKNOWN [Suspect]
     Active Substance: TEMOZOLOMIDE
     Indication: GLIOBLASTOMA MULTIFORME
     Dosage: 75 MG/M2, UNK
     Route: 065
     Dates: start: 20170911, end: 20171023
  2. TEMOZOLOMIDE UNKNOWN [Suspect]
     Active Substance: TEMOZOLOMIDE
     Dosage: ADJUVANT 150 MG/M2, STARTED 3 WEEKS PRIOR TO ADMISSION
     Route: 065
     Dates: start: 20171116, end: 20171120
  3. LEVETIRACETAM. [Suspect]
     Active Substance: LEVETIRACETAM
     Indication: PRODUCT USED FOR UNKNOWN INDICATION
     Dosage: UNK
     Route: 065

REACTIONS (7)
  - Idiosyncratic drug reaction [Unknown]
  - Dry mouth [Unknown]
  - Dental caries [Unknown]
  - Aplastic anaemia [Fatal]
  - Bone pain [Unknown]
  - Tremor [Unknown]
  - B-cell lymphoma [Unknown]

NARRATIVE: CASE EVENT DATE: 20180110
